FAERS Safety Report 15808660 (Version 2)
Quarter: 2019Q1

REPORT INFORMATION
  Report Type: Spontaneous
  Country: US (occurrence: US)
  Receive Date: 20190110
  Receipt Date: 20190131
  Transmission Date: 20190417
  Serious: No
  Sender: FDA-Public Use
  Company Number: PHHY2019US003786

PATIENT
  Sex: Female

DRUGS (1)
  1. SYSTANE GELDROPS [Suspect]
     Active Substance: POLYETHYLENE GLYCOL 400\PROPYLENE GLYCOL
     Indication: PRODUCT USED FOR UNKNOWN INDICATION
     Route: 047

REACTIONS (4)
  - Vision blurred [Unknown]
  - Product quality issue [Unknown]
  - Product residue present [Unknown]
  - Abnormal sensation in eye [Unknown]
